FAERS Safety Report 6590813-2 (Version None)
Quarter: 2010Q1

REPORT INFORMATION
  Report Type: 
  Country: None (occurrence: None)
  Receive Date: 20100219
  Receipt Date: 20100209
  Transmission Date: 20100710
  Serious: Yes (Other)
  Sender: FDA-Public Use
  Company Number: CA-PFIZER INC-2010017711

PATIENT
  Sex: Male

DRUGS (2)
  1. DETROL LA [Suspect]
     Dosage: 3 MG, 2X/DAY
     Dates: start: 20070101, end: 20070701
  2. APO-OXYBUTYNIN [Concomitant]
     Dosage: UNK

REACTIONS (4)
  - COMA [None]
  - EPILEPSY [None]
  - LUNG NEOPLASM MALIGNANT [None]
  - URINARY INCONTINENCE [None]
